FAERS Safety Report 8576740-X (Version None)
Quarter: 2012Q3

REPORT INFORMATION
  Report Type: 
  Country: None (occurrence: None)
  Receive Date: 20120725
  Receipt Date: 20120712
  Transmission Date: 20120928
  Serious: Yes (Other)
  Sender: FDA-Public Use
  Company Number: 2012SA049685

PATIENT
  Sex: Male

DRUGS (1)
  1. CAPZASIN [Suspect]

REACTIONS (1)
  - CHEMICAL BURN OF SKIN [None]
